FAERS Safety Report 6748746-4 (Version None)
Quarter: 2010Q2

REPORT INFORMATION
  Report Type: 
  Country: None (occurrence: None)
  Receive Date: 20100601
  Receipt Date: 20100518
  Transmission Date: 20101027
  Serious: Yes (Hospitalization)
  Sender: FDA-Public Use
  Company Number: PHHY2010US32210

PATIENT
  Sex: Female

DRUGS (2)
  1. EXJADE [Suspect]
     Indication: IRON OVERLOAD
     Dosage: 1500 MG, QD
     Route: 048
  2. EXJADE [Suspect]
     Dosage: 1500 MG/DAY

REACTIONS (6)
  - ABDOMINAL PAIN UPPER [None]
  - APPENDICECTOMY [None]
  - APPENDICITIS [None]
  - CHOLECYSTECTOMY [None]
  - CHOLECYSTITIS [None]
  - OVARIAN CYST RUPTURED [None]
